FAERS Safety Report 12983703 (Version 1)
Quarter: 2016Q4

REPORT INFORMATION
  Report Type: Report from Study
  Country: None (occurrence: BR)
  Receive Date: 20161129
  Receipt Date: 20161129
  Transmission Date: 20170207
  Serious: Yes (Other)
  Sender: FDA-Public Use
  Company Number: BR-ABBVIE-16P-020-1794149-00

PATIENT
  Age: 78 Year
  Sex: Female
  Weight: 52.5 kg

DRUGS (5)
  1. VASLIP [Concomitant]
     Indication: THYROID DISORDER
     Dosage: AT NIGHT
     Dates: start: 2012
  2. OMEPRAZOLE. [Concomitant]
     Active Substance: OMEPRAZOLE
     Indication: GASTRIC DISORDER
     Dosage: WHEN STOMACH ATTACKS
  3. LEXOTAN [Concomitant]
     Active Substance: BROMAZEPAM
     Indication: SLEEP DISORDER THERAPY
     Dosage: AT NIGHT
     Dates: start: 2013
  4. NEXIUM [Concomitant]
     Active Substance: ESOMEPRAZOLE MAGNESIUM
     Indication: GASTRITIS
     Dosage: WHEN HER STOMACH ATTACKS
  5. SYNTHROID [Suspect]
     Active Substance: LEVOTHYROXINE SODIUM
     Indication: HYPOTHYROIDISM
     Dosage: DAILY DOSE: 1 TABLET; MORNING
     Route: 048
     Dates: start: 2012

REACTIONS (7)
  - Bursitis [Recovered/Resolved]
  - Fall [Unknown]
  - Labyrinthitis [Recovered/Resolved]
  - Infection [Recovered/Resolved]
  - Glucose tolerance impaired [Not Recovered/Not Resolved]
  - Weight decreased [Not Recovered/Not Resolved]
  - Dizziness [Unknown]

NARRATIVE: CASE EVENT DATE: 2014
